FAERS Safety Report 18306336 (Version 1)
Quarter: 2020Q3

REPORT INFORMATION
  Report Type: Spontaneous
  Country: US (occurrence: US)
  Receive Date: 20200924
  Receipt Date: 20200924
  Transmission Date: 20201103
  Serious: Yes (Death)
  Sender: FDA-Public Use
  Company Number: None

PATIENT
  Age: 74 Year
  Sex: Male
  Weight: 119 kg

DRUGS (3)
  1. ATORVASTATIN [Concomitant]
     Active Substance: ATORVASTATIN
     Dates: start: 20200910, end: 20200912
  2. AMIODARONE [Concomitant]
     Active Substance: AMIODARONE
     Dates: start: 20200912, end: 20200912
  3. REMDESIVIR. [Suspect]
     Active Substance: REMDESIVIR
     Indication: COVID-19
     Route: 041
     Dates: start: 20200910, end: 20200913

REACTIONS (9)
  - Hypotension [None]
  - Hepatotoxicity [None]
  - Multiple organ dysfunction syndrome [None]
  - General physical health deterioration [None]
  - Hypoxia [None]
  - Respiratory failure [None]
  - Hypovolaemia [None]
  - Acute kidney injury [None]
  - Thrombosis [None]

NARRATIVE: CASE EVENT DATE: 20200914
